FAERS Safety Report 23568939 (Version 1)
Quarter: 2024Q1

REPORT INFORMATION
  Report Type: Report from Study
  Country: US (occurrence: US)
  Receive Date: 20240227
  Receipt Date: 20240227
  Transmission Date: 20240410
  Serious: No
  Sender: FDA-Public Use
  Company Number: US-ORG100014127-2023001005

PATIENT
  Age: 57 Year
  Sex: Female

DRUGS (5)
  1. METOPIRONE [Suspect]
     Active Substance: METYRAPONE
     Indication: Cushing^s syndrome
     Dosage: 3 CAPSULES EVERY NIGHT AT BEDTIME WITH MILK OR SNACK
     Route: 048
     Dates: start: 20230519
  2. ATENOLOL TAB 50MG [Concomitant]
     Indication: Product used for unknown indication
  3. CELEBREX CAP 200MG [Concomitant]
     Indication: Product used for unknown indication
  4. GABAPENTIN CAP 100MG [Concomitant]
     Indication: Product used for unknown indication
  5. HYDROCHLOROT TAB 25MG [Concomitant]
     Indication: Product used for unknown indication

REACTIONS (1)
  - Off label use [Unknown]

NARRATIVE: CASE EVENT DATE: 20230519
